FAERS Safety Report 20198684 (Version 1)
Quarter: 2021Q4

REPORT INFORMATION
  Report Type: Spontaneous
  Country: US (occurrence: None)
  Receive Date: 20211216
  Receipt Date: 20211216
  Transmission Date: 20220303
  Serious: Yes (Hospitalization)
  Sender: FDA-Public Use
  Company Number: None

PATIENT
  Sex: Female

DRUGS (18)
  1. XOLAIR [Suspect]
     Active Substance: OMALIZUMAB
     Indication: Asthma
     Dosage: OTHER QUANTITY : 75/0.5 MG/ML;?FREQUENCY : EVERY OTHER WEEK;?
     Route: 058
  2. ASPIRIN [Concomitant]
     Active Substance: ASPIRIN
  3. AZELASTINE SPR 0.1% [Concomitant]
  4. BUDESONIDE SUS [Concomitant]
  5. BUSPIRONE [Concomitant]
     Active Substance: BUSPIRONE HYDROCHLORIDE
  6. CYANOCOBALAMIN [Concomitant]
     Active Substance: CYANOCOBALAMIN
  7. DULERA AER [Concomitant]
  8. EPIPEN [Concomitant]
     Active Substance: EPINEPHRINE
  9. LEVOTHYROXINE [Concomitant]
     Active Substance: LEVOTHYROXINE
  10. LINZESS [Concomitant]
     Active Substance: LINACLOTIDE
  11. MAGNESIUM [Concomitant]
     Active Substance: MAGNESIUM
  12. MEXIUM [Concomitant]
  13. ONDANSETRON [Concomitant]
     Active Substance: ONDANSETRON
  14. PREVACID [Concomitant]
     Active Substance: LANSOPRAZOLE
  15. PROCHLORPER POW MALEATE [Concomitant]
  16. XOLAIR [Concomitant]
     Active Substance: OMALIZUMAB
  17. XOPENEX NEB [Concomitant]
  18. XOPENEX HFA AER [Concomitant]

REACTIONS (1)
  - Thrombosis [None]
